FAERS Safety Report 5197754-6 (Version None)
Quarter: 2006Q4

REPORT INFORMATION
  Report Type: 
  Country: None (occurrence: None)
  Receive Date: 20061228
  Receipt Date: 20061214
  Transmission Date: 20070319
  Serious: Yes (Other)
  Sender: FDA-Public Use
  Company Number: 2006RR-04938

PATIENT
  Age: 80 Year
  Sex: Male

DRUGS (13)
  1. ENALAPRIL MALEATE [Suspect]
     Indication: HYPERTENSION
     Dosage: 20 MG, ORAL
     Route: 048
  2. ADCAL-D3 [Concomitant]
  3. BUMETANIDE [Concomitant]
  4. DETRUSITOL XL [Concomitant]
  5. DIGOXIN [Concomitant]
  6. DOCUSATE [Concomitant]
  7. FYBROGEL [Concomitant]
  8. ISOSORBIDE MONONITRATE [Concomitant]
  9. RISEDRONATE SODIUM [Concomitant]
  10. SALBUTAMOL (SALBUTAMOL) [Concomitant]
  11. SALMETEROL [Concomitant]
  12. SENNA [Concomitant]
  13. SERETIDE [Concomitant]

REACTIONS (1)
  - RENAL FAILURE [None]
